FAERS Safety Report 8573437-7 (Version None)
Quarter: 2012Q3

REPORT INFORMATION
  Report Type: 
  Country: None (occurrence: None)
  Receive Date: 20120806
  Receipt Date: 20120802
  Transmission Date: 20120928
  Serious: No
  Sender: FDA-Public Use
  Company Number: US-PFIZER INC-2012188417

PATIENT
  Age: 68 Year
  Sex: Female
  Weight: 99.773 kg

DRUGS (10)
  1. HYDROCORTISONE 0.05% CREAM [Interacting]
     Indication: PAIN
     Dosage: UNK, DAILY
     Dates: start: 20120710
  2. HYDROCORTISONE ACETATE [Suspect]
     Indication: PAIN
     Dosage: 25 MG, DAILY
     Dates: start: 20120625, end: 20120710
  3. HYDROCORTISONE ACETATE [Suspect]
     Indication: DISCOMFORT
  4. HYDROCORTISONE 0.05% CREAM [Interacting]
     Indication: ANORECTAL DISCOMFORT
  5. HYDROCHLOROTHIAZIDE [Concomitant]
     Indication: DIURETIC THERAPY
     Dosage: 25 MG, DAILY
  6. FISH OIL [Interacting]
     Dosage: UNK
     Dates: end: 20120719
  7. HYDROCORTISONE 0.05% CREAM [Interacting]
     Indication: DISCOMFORT
  8. HYDROCORTISONE ACETATE [Suspect]
     Indication: ANORECTAL DISCOMFORT
  9. LOSARTAN [Concomitant]
     Indication: HYPERTENSION
     Dosage: 50 MG, DAILY
  10. OXYBUTYNIN [Concomitant]
     Indication: HYPERTONIC BLADDER
     Dosage: UNK. HALF A TABLET OF 0.5MG, 3X/DAY

REACTIONS (2)
  - DRUG INTERACTION [None]
  - DRUG INEFFECTIVE [None]
